FAERS Safety Report 15407341 (Version 1)
Quarter: 2018Q3

REPORT INFORMATION
  Report Type: Spontaneous
  Country: US (occurrence: US)
  Receive Date: 20180920
  Receipt Date: 20180920
  Transmission Date: 20181010
  Serious: Yes (Hospitalization, Other)
  Sender: FDA-Public Use
  Company Number: US-AMGEN-USASP2018128547

PATIENT
  Age: 77 Year
  Sex: Male

DRUGS (2)
  1. PROLIA [Suspect]
     Active Substance: DENOSUMAB
     Indication: OSTEOPOROSIS
     Dosage: UNK UNK, Q6MO
     Route: 065
     Dates: end: 2014
  2. PROLIA [Suspect]
     Active Substance: DENOSUMAB
     Dosage: UNK UNK, Q6MO
     Route: 065
     Dates: start: 2015

REACTIONS (5)
  - Duodenal ulcer haemorrhage [Not Recovered/Not Resolved]
  - Empyema [Unknown]
  - Asthenia [Not Recovered/Not Resolved]
  - Syncope [Unknown]
  - Anaemia [Not Recovered/Not Resolved]

NARRATIVE: CASE EVENT DATE: 2014
